FAERS Safety Report 16230020 (Version 1)
Quarter: 2019Q2

REPORT INFORMATION
  Report Type: Spontaneous
  Country: AU (occurrence: AU)
  Receive Date: 20190423
  Receipt Date: 20190423
  Transmission Date: 20190711
  Serious: Yes (Other)
  Sender: FDA-Public Use
  Company Number: AU-FRESENIUS KABI-FK201904743

PATIENT
  Age: 60 Year
  Sex: Female

DRUGS (3)
  1. DAPTOMYCIN (MANUFACTURER UNKNOWN) [Suspect]
     Active Substance: DAPTOMYCIN
     Route: 042
  2. PIPERACILLIN SODIUM/TAZOBACTAM SODIUM [Concomitant]
     Indication: EVIDENCE BASED TREATMENT
     Route: 065
  3. DAPTOMYCIN (MANUFACTURER UNKNOWN) [Suspect]
     Active Substance: DAPTOMYCIN
     Indication: EVIDENCE BASED TREATMENT
     Route: 042

REACTIONS (3)
  - Underdose [Recovered/Resolved]
  - Drug resistance [Recovered/Resolved]
  - Product prescribing error [Recovered/Resolved]
